FAERS Safety Report 6266680-3 (Version None)
Quarter: 2009Q3

REPORT INFORMATION
  Report Type: 
  Country: None (occurrence: None)
  Receive Date: 20090710
  Receipt Date: 20090703
  Transmission Date: 20100115
  Serious: Yes (Hospitalization)
  Sender: FDA-Public Use
  Company Number: 2009SP014652

PATIENT
  Sex: Male

DRUGS (1)
  1. TEMODAL [Suspect]
     Indication: GLIOBLASTOMA MULTIFORME
     Dosage: UNK; UNK
     Dates: start: 20080101

REACTIONS (3)
  - ACCIDENTAL OVERDOSE [None]
  - LOWER RESPIRATORY TRACT INFECTION [None]
  - PANCYTOPENIA [None]
